FAERS Safety Report 6276398-9 (Version None)
Quarter: 2009Q3

REPORT INFORMATION
  Report Type: 
  Country: None (occurrence: None)
  Receive Date: 20090717
  Receipt Date: 20090717
  Transmission Date: 20100115
  Serious: No
  Sender: FDA-Public Use
  Company Number: None

PATIENT
  Age: 60 Year
  Sex: Male
  Weight: 92.08 kg

DRUGS (2)
  1. LISINOPRIL [Suspect]
     Indication: HYPERTENSION
     Dosage: 40 MG EVERY DAY PO
     Route: 048
     Dates: start: 20090306, end: 20090625
  2. COLCHICINE [Suspect]
     Indication: GOUT
     Dosage: 0.6 MG EVERY DAY PO
     Route: 048
     Dates: start: 20090306, end: 20090603

REACTIONS (1)
  - AZOTAEMIA [None]
